FAERS Safety Report 25494740 (Version 1)
Quarter: 2025Q2

REPORT INFORMATION
  Report Type: Spontaneous
  Country: US (occurrence: None)
  Receive Date: 20250629
  Receipt Date: 20250629
  Transmission Date: 20250716
  Serious: Yes (Hospitalization)
  Sender: FDA-CTU
  Company Number: None

PATIENT
  Sex: Female

DRUGS (11)
  1. IBANDRONATE SODIUM [Suspect]
     Active Substance: IBANDRONATE SODIUM
     Indication: Senile osteoporosis
     Route: 042
     Dates: start: 20230815
  2. ASPIRIN [Concomitant]
     Active Substance: ASPIRIN
  3. ATORVASTATIN [Concomitant]
     Active Substance: ATORVASTATIN
  4. CALCIUM [Concomitant]
     Active Substance: CALCIUM
  5. CHONDROITIN POW SULFATE [Concomitant]
  6. CRANBERRY [Concomitant]
     Active Substance: CRANBERRY
  7. D-2000 MAXIMUM STRENGTH [Concomitant]
  8. FISH OIL [Concomitant]
     Active Substance: FISH OIL
  9. GLUCOSAMINE POW HCL [Concomitant]
  10. MELOXICAM [Concomitant]
     Active Substance: MELOXICAM
  11. OMEGA-3 ACIDS [Concomitant]
     Active Substance: OMEGA-3 FATTY ACIDS

REACTIONS (1)
  - Parathyroid gland operation [None]
